FAERS Safety Report 7488282-3 (Version None)
Quarter: 2011Q2

REPORT INFORMATION
  Report Type: 
  Country: None (occurrence: None)
  Receive Date: 20110518
  Receipt Date: 20110509
  Transmission Date: 20111010
  Serious: Yes (Hospitalization, Other)
  Sender: FDA-Public Use
  Company Number: BR-ASTRAZENECA-2007UW26395

PATIENT
  Age: 32 Year
  Sex: Male
  Weight: 89 kg

DRUGS (21)
  1. SEROQUEL [Suspect]
     Indication: SCHIZOAFFECTIVE DISORDER
     Route: 048
     Dates: start: 20030101
  2. SEROQUEL [Suspect]
     Route: 048
     Dates: start: 20040101, end: 20100101
  3. SEROQUEL [Suspect]
     Route: 048
     Dates: start: 20080101
  4. AMPLICTIL [Concomitant]
  5. RISPERIDON [Concomitant]
  6. LITHIUM CARBONATE [Concomitant]
     Dosage: TWICE A DAY
     Route: 048
     Dates: start: 20040101, end: 20110201
  7. CLONAZEPAM [Concomitant]
     Dosage: THREE TIMES A DAY
     Route: 048
     Dates: start: 20040101
  8. SEROQUEL [Suspect]
     Indication: BIPOLAR DISORDER
     Route: 048
     Dates: start: 20030101
  9. DEPAKOTE [Concomitant]
     Route: 048
     Dates: start: 20110201
  10. FENOBARBITAL [Concomitant]
     Dates: start: 20080101
  11. SEROQUEL [Suspect]
     Route: 048
     Dates: start: 20100101
  12. NEOZINE [Concomitant]
     Dates: start: 20080101
  13. LITHIUM CARBONATE [Concomitant]
     Route: 048
     Dates: start: 20110201
  14. CLONAZEPAM [Concomitant]
     Dosage: TWICE A DAY
     Route: 048
     Dates: start: 20080101
  15. SEROQUEL [Suspect]
     Route: 048
     Dates: start: 20080101
  16. SEROQUEL [Suspect]
     Route: 048
     Dates: start: 20100101, end: 20100101
  17. SEROQUEL [Suspect]
     Route: 048
     Dates: start: 20100101, end: 20100101
  18. ZYPREXA [Concomitant]
  19. DEPAKOTE [Concomitant]
     Route: 048
     Dates: start: 20080101
  20. SEROQUEL [Suspect]
     Route: 048
     Dates: start: 20040101, end: 20100101
  21. SEROQUEL [Suspect]
     Route: 048
     Dates: start: 20100101

REACTIONS (12)
  - MANIA [None]
  - SUICIDAL IDEATION [None]
  - DIZZINESS [None]
  - EAR DISCOMFORT [None]
  - HYPERSOMNIA [None]
  - PAIN [None]
  - HOSPITALISATION [None]
  - EJACULATION DISORDER [None]
  - ASTHENOPIA [None]
  - THOUGHT BLOCKING [None]
  - INSOMNIA [None]
  - DRY MOUTH [None]
